FAERS Safety Report 8025871-1 (Version None)
Quarter: 2012Q1

REPORT INFORMATION
  Report Type: 
  Country: None (occurrence: None)
  Receive Date: 20120105
  Receipt Date: 20111228
  Transmission Date: 20120608
  Serious: Yes (Hospitalization, Other)
  Sender: FDA-Public Use
  Company Number: US-ASTRAZENECA-2011SE78901

PATIENT
  Age: 59 Year
  Sex: Female
  Weight: 97.5 kg

DRUGS (7)
  1. ALLERGY MEDICATION [Concomitant]
     Indication: MULTIPLE ALLERGIES
  2. SEROQUEL [Suspect]
     Indication: BIPOLAR DISORDER
     Route: 048
     Dates: start: 19770101
  3. SEROQUEL [Suspect]
     Route: 048
  4. HIGH BLOOD PRESSURE MEDICATION [Concomitant]
     Indication: HYPERTENSION
  5. ASPIRIN [Concomitant]
     Dosage: UNKNOWN DOSE DAILY
  6. PAIN MEDICATION [Concomitant]
     Indication: PAIN
  7. LEXAPRO [Concomitant]
     Dates: start: 20060101

REACTIONS (4)
  - INSOMNIA [None]
  - ACCIDENT [None]
  - ABASIA [None]
  - DRUG DOSE OMISSION [None]
